FAERS Safety Report 10110669 (Version 1)
Quarter: 2014Q2

REPORT INFORMATION
  Report Type: Spontaneous
  Country: US (occurrence: None)
  Receive Date: 20140424
  Receipt Date: 20140424
  Transmission Date: 20141212
  Serious: Yes (Other)
  Sender: FDA-Public Use
  Company Number: None

PATIENT
  Age: 50 Year
  Sex: Male
  Weight: 72.58 kg

DRUGS (2)
  1. ZYRTEC [Suspect]
     Indication: ILL-DEFINED DISORDER
     Dosage: 1 TABLET, ONCE DAILY, TAKEN BY MOUTH
     Route: 048
  2. ZYRTEC [Suspect]
     Indication: MULTIPLE ALLERGIES
     Dosage: 1 TABLET, ONCE DAILY, TAKEN BY MOUTH
     Route: 048

REACTIONS (3)
  - Urticaria [None]
  - Pruritus [None]
  - Headache [None]
